FAERS Safety Report 19464268 (Version 2)
Quarter: 2021Q2

REPORT INFORMATION
  Report Type: Spontaneous
  Country: US (occurrence: US)
  Receive Date: 20210626
  Receipt Date: 20210626
  Transmission Date: 20210717
  Serious: No
  Sender: FDA-Public Use
  Company Number: NVSC2021US137388

PATIENT

DRUGS (1)
  1. XIIDRA [Suspect]
     Active Substance: LIFITEGRAST
     Indication: DRY EYE
     Dosage: 10 MG, BID
     Route: 047
     Dates: start: 202106, end: 202106

REACTIONS (2)
  - Pruritus allergic [Unknown]
  - Discomfort [Unknown]
